FAERS Safety Report 5491500-4 (Version None)
Quarter: 2007Q4

REPORT INFORMATION
  Report Type: 
  Country: None (occurrence: None)
  Receive Date: 20071022
  Receipt Date: 20071016
  Transmission Date: 20080405
  Serious: Yes (Other)
  Sender: FDA-Public Use
  Company Number: PHFR2007GB02725

PATIENT
  Age: 27 Year
  Sex: Male

DRUGS (2)
  1. CLOZARIL [Suspect]
     Indication: SCHIZOPHRENIA
     Dosage: UNK, UNK
     Route: 048
     Dates: start: 20020319
  2. CLOZARIL [Suspect]
     Dosage: 450MG/DAY
     Route: 048
     Dates: start: 20050101

REACTIONS (3)
  - ANAEMIA [None]
  - DIARRHOEA [None]
  - HAEMOGLOBIN DECREASED [None]
